FAERS Safety Report 8149765-6 (Version None)
Quarter: 2012Q1

REPORT INFORMATION
  Report Type: 
  Country: None (occurrence: None)
  Receive Date: 20120218
  Receipt Date: 20111130
  Transmission Date: 20120608
  Serious: No
  Sender: FDA-Public Use
  Company Number: US-ALLERGAN-1115645US

PATIENT
  Age: 41 Year
  Sex: Female

DRUGS (13)
  1. BOTOX COSMETIC [Suspect]
     Dosage: UNK
     Dates: start: 20110301, end: 20110301
  2. BIO-IDENTICAL HORMONES [Concomitant]
  3. 5-HTP [Concomitant]
  4. CALCIUM [Concomitant]
  5. THYROID TAB [Concomitant]
  6. MILK THISTLE [Concomitant]
  7. VITAMIN B COMPLEX CAP [Concomitant]
  8. BOTOX COSMETIC [Suspect]
     Indication: SKIN WRINKLING
     Dosage: UNK
     Route: 030
     Dates: start: 20111118, end: 20111118
  9. PRASTERONE [Concomitant]
  10. CHROMIUM CHLORIDE [Concomitant]
  11. FISH OIL [Concomitant]
  12. PYCGNOGNAL [Concomitant]
  13. MINOCYCLINE HCL [Suspect]
     Indication: ACNE

REACTIONS (4)
  - PARANOIA [None]
  - ANXIETY [None]
  - AFFECT LABILITY [None]
  - MENTAL DISORDER [None]
